FAERS Safety Report 7071581-7 (Version None)
Quarter: 2010Q4

REPORT INFORMATION
  Report Type: 
  Country: None (occurrence: None)
  Receive Date: 20101029
  Receipt Date: 20101019
  Transmission Date: 20110411
  Serious: Yes (Hospitalization)
  Sender: FDA-Public Use
  Company Number: US-JNJFOC-20100907943

PATIENT
  Sex: Male
  Weight: 51.7 kg

DRUGS (7)
  1. REMICADE [Suspect]
     Indication: INFLAMMATORY BOWEL DISEASE
     Route: 042
  2. 5-AMINOSALICYLIC ACID [Concomitant]
     Route: 048
  3. METHOTREXATE [Concomitant]
  4. CONCERTA [Concomitant]
  5. LISINOPRIL [Concomitant]
  6. FERROUS SULFATE [Concomitant]
  7. VITAMIN TAB [Concomitant]

REACTIONS (4)
  - HAEMOGLOBIN DECREASED [None]
  - HYPOPITUITARISM [None]
  - PORTAL VENOUS GAS [None]
  - PYREXIA [None]
